FAERS Safety Report 8097726-8 (Version None)
Quarter: 2012Q1

REPORT INFORMATION
  Report Type: 
  Country: None (occurrence: None)
  Receive Date: 20120128
  Receipt Date: 20110714
  Transmission Date: 20120608
  Serious: No
  Sender: FDA-Public Use
  Company Number: US-ABBOTT-11P-163-0839090-00

PATIENT
  Age: 56 Year
  Sex: Male

DRUGS (8)
  1. HUMIRA [Suspect]
     Indication: CROHN'S DISEASE
     Dates: start: 20100301
  2. LEXAPRO [Concomitant]
     Indication: DEPRESSION
     Dosage: DAILY
  3. AMBIEN [Concomitant]
     Indication: INSOMNIA
     Dosage: DAILY
  4. VICODIN [Concomitant]
     Indication: BACK PAIN
     Dosage: AS NEEDED
  5. MULTIVITAMIN [Concomitant]
     Indication: PRODUCT USED FOR UNKNOWN INDICATION
     Dosage: DAILY
  6. ASACOL [Concomitant]
     Indication: CROHN'S DISEASE
     Dosage: DAILY
  7. FLOMAX [Concomitant]
     Indication: PROSTATIC DISORDER
     Dosage: NOT REPORTED
  8. PROTONIX [Concomitant]
     Indication: GASTROOESOPHAGEAL REFLUX DISEASE
     Dosage: DAILY

REACTIONS (1)
  - INJECTION SITE PAIN [None]
